FAERS Safety Report 8959720 (Version 1)
Quarter: 2012Q4

REPORT INFORMATION
  Report Type: 
  Country: US (occurrence: US)
  Receive Date: 20121212
  Receipt Date: 20121212
  Transmission Date: 20130627
  Serious: No
  Sender: FDA-Public Use
  Company Number: US-TEVA-345635USA

PATIENT
  Age: 74 Year
  Sex: Female

DRUGS (19)
  1. BUDESONIDE [Suspect]
     Indication: CHRONIC OBSTRUCTIVE PULMONARY DISEASE
     Dosage: inhalation
  2. BROVANA [Suspect]
     Indication: CHRONIC OBSTRUCTIVE PULMONARY DISEASE
     Dosage: 30 Microgram Daily; inhalation
     Dates: start: 201205
  3. WARFARIN SODIUM [Concomitant]
  4. FUROSEMIDE [Concomitant]
  5. DIGOXIN [Concomitant]
  6. ESOMEPRAZOLE MAGNESIUM [Concomitant]
  7. CARVEDILOL [Concomitant]
  8. ACETYLSALICYLIC ACID [Concomitant]
  9. TRAMADOL [Concomitant]
  10. ISOSORBIDE [Concomitant]
  11. THIAMINE HYDROCHLORIDE [Concomitant]
  12. DRONEDARONE [Concomitant]
  13. IRON [Concomitant]
  14. ASCORBIC ACID [Concomitant]
  15. ROSUVASTATIN [Concomitant]
  16. OXYGEN [Concomitant]
  17. INSULIN LISPRO [Concomitant]
  18. DILTIAZEM [Concomitant]
  19. IBUPROFEN [Concomitant]
     Route: 045

REACTIONS (1)
  - Blood glucose increased [Not Recovered/Not Resolved]
